FAERS Safety Report 13264317 (Version 1)
Quarter: 2017Q1

REPORT INFORMATION
  Report Type: Spontaneous
  Country: US (occurrence: US)
  Receive Date: 20170222
  Receipt Date: 20170222
  Transmission Date: 20170428
  Serious: No
  Sender: FDA-Public Use
  Company Number: None

PATIENT
  Age: 61 Year
  Sex: Male

DRUGS (1)
  1. AMPYRA [Suspect]
     Active Substance: DALFAMPRIDINE
     Indication: MULTIPLE SCLEROSIS
     Route: 048
     Dates: start: 20130809

REACTIONS (5)
  - Asthenia [None]
  - Activities of daily living impaired [None]
  - Fatigue [None]
  - Diabetes mellitus inadequate control [None]
  - Fall [None]

NARRATIVE: CASE EVENT DATE: 20170208
